FAERS Safety Report 7880502 (Version 2)
Quarter: 2012Q4

REPORT INFORMATION
  Report Type: Report from Study
  Country: JP (occurrence: JP)
  Receive Date: 20110331
  Receipt Date: 20121107
  Transmission Date: 20130627
  Serious: Yes (Other)
  Sender: FDA-Public Use
  Company Number: PHHY2011JP22953

PATIENT
  Age: 52 Year
  Sex: Male
  Weight: 70 kg

DRUGS (5)
  1. AFINITOR [Suspect]
     Indication: METASTATIC RENAL CELL CARCINOMA
     Dosage: 10 mg/day
     Route: 048
     Dates: start: 20110106, end: 20110131
  2. AFINITOR [Suspect]
     Dosage: 10 mg/day
     Route: 048
     Dates: start: 20110215, end: 20110310
  3. AFINITOR [Suspect]
     Dosage: 10 mg/day
     Route: 048
     Dates: start: 20110401
  4. MICARDIS [Concomitant]
     Dosage: 40 mg
     Route: 048
     Dates: start: 200604
  5. AMARYL [Concomitant]
     Dosage: 1 mg
     Route: 048
     Dates: start: 200604

REACTIONS (4)
  - Anal abscess [Recovered/Resolved]
  - Proctalgia [Recovered/Resolved]
  - Blood glucose increased [Unknown]
  - Stomatitis [Unknown]
